FAERS Safety Report 7633392-0 (Version None)
Quarter: 2011Q3

REPORT INFORMATION
  Report Type: 
  Country: None (occurrence: None)
  Receive Date: 20110725
  Receipt Date: 20101207
  Transmission Date: 20111222
  Serious: No
  Sender: FDA-Public Use
  Company Number: US-BRISTOL-MYERS SQUIBB COMPANY-15429384

PATIENT
  Age: 66 Year
  Sex: Female

DRUGS (1)
  1. SPRYCEL [Suspect]
     Dates: start: 20100817

REACTIONS (1)
  - PLEURAL EFFUSION [None]
